FAERS Safety Report 7374579-4 (Version None)
Quarter: 2011Q1

REPORT INFORMATION
  Report Type: 
  Country: None (occurrence: None)
  Receive Date: 20110325
  Receipt Date: 20100426
  Transmission Date: 20110831
  Serious: No
  Sender: FDA-Public Use
  Company Number: US-MYLANLABS-2010S1005575

PATIENT
  Age: 66 Year
  Sex: Female
  Weight: 89.81 kg

DRUGS (6)
  1. METOPROLOL [Concomitant]
     Indication: BLOOD PRESSURE INCREASED
     Route: 048
  2. ZOCOR [Concomitant]
     Indication: BLOOD CHOLESTEROL INCREASED
     Route: 048
  3. ETODOLAC [Concomitant]
     Route: 048
  4. FENTANYL-100 [Suspect]
     Indication: PAIN
     Dosage: CHANGED PATCHES Q3D
     Route: 062
     Dates: start: 20090101
  5. RANITIDINE [Concomitant]
     Route: 048
  6. CENESTIN [Concomitant]

REACTIONS (3)
  - PAIN [None]
  - DRUG EFFECT DECREASED [None]
  - DRUG WITHDRAWAL SYNDROME [None]
